FAERS Safety Report 17637978 (Version 1)
Quarter: 2020Q3

REPORT INFORMATION
  Report Type: Spontaneous
  Country: US (occurrence: US)
  Receive Date: 20200407
  Receipt Date: 20200407
  Transmission Date: 20201105
  Serious: Yes (Other)
  Sender: FDA-Public Use
  Company Number: None

PATIENT
  Age: 17 Year
  Sex: Male
  Weight: 61.4 kg

DRUGS (1)
  1. KISSPEPTIN?10. [Suspect]
     Active Substance: KISSPEPTIN-10
     Indication: PRIMARY HYPOGONADISM
     Route: 058

REACTIONS (2)
  - Weight increased [None]
  - Oestrone increased [None]

NARRATIVE: CASE EVENT DATE: 20200323
